FAERS Safety Report 18489823 (Version 1)
Quarter: 2020Q4

REPORT INFORMATION
  Report Type: Spontaneous
  Country: US (occurrence: US)
  Receive Date: 20201111
  Receipt Date: 20201111
  Transmission Date: 20210114
  Serious: Yes (Other)
  Sender: FDA-Public Use
  Company Number: US-DRREDDYS-USA/USA/20/0128829

PATIENT
  Age: 58 Year
  Sex: Female

DRUGS (8)
  1. 5-FLUOROURACIL [Concomitant]
     Active Substance: FLUOROURACIL
     Indication: COLON CANCER STAGE III
     Dosage: FOLFOX THERAPY WITH BEVACIZUMAB
  2. BEVACIZUMAB. [Suspect]
     Active Substance: BEVACIZUMAB
     Indication: COLON CANCER STAGE III
     Dosage: FOLFOX WITH BEVACIZUMAB
  3. OXALIPLATIN. [Concomitant]
     Active Substance: OXALIPLATIN
     Indication: COLON CANCER STAGE III
     Dosage: FOLFOX WITH BEVACIZUMAB, REDUCED DOSE
  4. DEXAMETHASONE SODIUM PHOSPHATE INJECTION, 4 MG/ML [Suspect]
     Active Substance: DEXAMETHASONE SODIUM PHOSPHATE
  5. DEXAMETHASONE SODIUM PHOSPHATE INJECTION, 4 MG/ML [Suspect]
     Active Substance: DEXAMETHASONE SODIUM PHOSPHATE
  6. LEUCOVORIN. [Concomitant]
     Active Substance: LEUCOVORIN
     Indication: COLON CANCER STAGE III
     Dosage: FOLFOX WITH BEVACIZUMAB
  7. OXALIPLATIN. [Concomitant]
     Active Substance: OXALIPLATIN
  8. DEXAMETHASONE SODIUM PHOSPHATE INJECTION, 4 MG/ML [Suspect]
     Active Substance: DEXAMETHASONE SODIUM PHOSPHATE
     Indication: PREMEDICATION

REACTIONS (6)
  - Pneumonia [Recovered/Resolved]
  - Proteinuria [Unknown]
  - Epistaxis [Unknown]
  - Platelet count decreased [Recovering/Resolving]
  - Oedema peripheral [Unknown]
  - Petechiae [Unknown]
